FAERS Safety Report 7470422-3 (Version None)
Quarter: 2011Q2

REPORT INFORMATION
  Report Type: 
  Country: None (occurrence: None)
  Receive Date: 20110510
  Receipt Date: 20110427
  Transmission Date: 20111010
  Serious: Yes (Hospitalization, Other)
  Sender: FDA-Public Use
  Company Number: US-BAYER-201010813NA

PATIENT
  Age: 38 Year
  Sex: Female
  Weight: 86.168 kg

DRUGS (2)
  1. YAZ [Suspect]
     Indication: CONTRACEPTION
     Dosage: UNK
     Route: 048
     Dates: start: 20071001, end: 20071215
  2. YAZ [Suspect]
     Indication: MENSTRUAL CYCLE MANAGEMENT

REACTIONS (15)
  - CEREBRAL INFARCTION [None]
  - RENAL FAILURE ACUTE [None]
  - DEEP VEIN THROMBOSIS [None]
  - ASTHENIA [None]
  - NERVOUS SYSTEM DISORDER [None]
  - PAIN [None]
  - UPPER GASTROINTESTINAL HAEMORRHAGE [None]
  - DYSARTHRIA [None]
  - CONFUSIONAL STATE [None]
  - APHASIA [None]
  - NAUSEA [None]
  - HEADACHE [None]
  - INFERTILITY FEMALE [None]
  - DIZZINESS [None]
  - HEMIPARESIS [None]
